FAERS Safety Report 24181468 (Version 1)
Quarter: 2024Q3

REPORT INFORMATION
  Report Type: Spontaneous
  Country: CN (occurrence: CN)
  Receive Date: 20240807
  Receipt Date: 20240807
  Transmission Date: 20241017
  Serious: Yes (Other)
  Sender: SANDOZ
  Company Number: CN-SANDOZ-SDZ2023CN064894

PATIENT

DRUGS (2)
  1. TRIMETAZIDINE [Suspect]
     Active Substance: TRIMETAZIDINE
     Indication: Coronary artery disease
     Dosage: 20 MG/TIME, TID
     Route: 065
  2. ATORVASTATIN CALCIUM [Suspect]
     Active Substance: ATORVASTATIN CALCIUM
     Indication: Coronary artery disease
     Dosage: 10 MG/TIME, QD
     Route: 065

REACTIONS (3)
  - Angina pectoris [Unknown]
  - Cardiac failure [Unknown]
  - Arrhythmia [Unknown]
